FAERS Safety Report 5831349-3 (Version None)
Quarter: 2008Q3

REPORT INFORMATION
  Report Type: 
  Country: None (occurrence: None)
  Receive Date: 20080801
  Receipt Date: 20080729
  Transmission Date: 20090109
  Serious: Yes (Death)
  Sender: FDA-Public Use
  Company Number: AU-BOEHRINGER INGELHEIM GMBH, GERMANY-2008-BP-11916AU

PATIENT
  Age: 70 Year
  Sex: Male

DRUGS (1)
  1. SIFROL [Suspect]
     Route: 048

REACTIONS (1)
  - RENAL FAILURE [None]
